FAERS Safety Report 5188894-6 (Version None)
Quarter: 2006Q4

REPORT INFORMATION
  Report Type: 
  Country: None (occurrence: None)
  Receive Date: 20061221
  Receipt Date: 20061017
  Transmission Date: 20070319
  Serious: Yes (Death)
  Sender: FDA-Public Use
  Company Number: US-BOEHRINGER INGELHEIM PHARMACEUTICALS, INC.-2006-BP-12178BP

PATIENT
  Sex: Male
  Weight: 55.34 kg

DRUGS (3)
  1. SPIRIVA [Suspect]
     Indication: CHRONIC OBSTRUCTIVE PULMONARY DISEASE
     Route: 055
     Dates: start: 20061012, end: 20061013
  2. SEREVENT [Concomitant]
     Indication: DYSPNOEA
     Route: 055
  3. LISINOPRIL HCT [Concomitant]
     Route: 048

REACTIONS (1)
  - DEATH [None]
